FAERS Safety Report 22149847 (Version 2)
Quarter: 2023Q2

REPORT INFORMATION
  Report Type: Other
  Country: DE (occurrence: None)
  Receive Date: 20230329
  Receipt Date: 20230629
  Transmission Date: 20230722
  Serious: Yes (Hospitalization)
  Sender: FDA-Public Use
  Company Number: DE-ROCHE-3184257

PATIENT
  Sex: Female

DRUGS (9)
  1. TOCILIZUMAB [Suspect]
     Active Substance: TOCILIZUMAB
     Indication: Rheumatoid arthritis
     Route: 058
  2. TOCILIZUMAB [Suspect]
     Active Substance: TOCILIZUMAB
     Route: 058
  3. TICAGRELOR [Concomitant]
     Active Substance: TICAGRELOR
  4. BISOPROLOL [Concomitant]
     Active Substance: BISOPROLOL
  5. ROSUVASTATIN [Concomitant]
     Active Substance: ROSUVASTATIN
  6. VITAMIN D [Concomitant]
     Active Substance: VITAMIN D NOS
  7. EZETIMIBE [Concomitant]
     Active Substance: EZETIMIBE
  8. PREDNISOLONE [Concomitant]
     Active Substance: PREDNISOLONE
  9. CLOPIDOGREL [Concomitant]
     Active Substance: CLOPIDOGREL BISULFATE

REACTIONS (3)
  - Myocardial infarction [Recovered/Resolved]
  - Coronary artery disease [Not Recovered/Not Resolved]
  - Myocardial infarction [Not Recovered/Not Resolved]

NARRATIVE: CASE EVENT DATE: 20220701
